FAERS Safety Report 4626801-2 (Version None)
Quarter: 2005Q2

REPORT INFORMATION
  Report Type: 
  Country: None (occurrence: None)
  Receive Date: 20050401
  Receipt Date: 20050401
  Transmission Date: 20051028
  Serious: No
  Sender: FDA-Public Use
  Company Number: None

PATIENT
  Age: 18 Year
  Sex: Female
  Weight: 85.7298 kg

DRUGS (4)
  1. GEODON [Suspect]
     Indication: ADJUSTMENT DISORDER
     Dosage: SEE IMAGE
     Route: 048
     Dates: start: 20050317, end: 20050325
  2. GEODON [Suspect]
     Indication: AUTISM
     Dosage: SEE IMAGE
     Route: 048
     Dates: start: 20050317, end: 20050325
  3. GEODON [Suspect]
     Indication: ADJUSTMENT DISORDER
     Dosage: SEE IMAGE
     Route: 048
     Dates: start: 20050325, end: 20050330
  4. GEODON [Suspect]
     Indication: AUTISM
     Dosage: SEE IMAGE
     Route: 048
     Dates: start: 20050325, end: 20050330

REACTIONS (2)
  - MEDICATION ERROR [None]
  - OVERDOSE [None]
